FAERS Safety Report 18725165 (Version 1)
Quarter: 2021Q1

REPORT INFORMATION
  Report Type: Spontaneous
  Country: US (occurrence: US)
  Receive Date: 20210111
  Receipt Date: 20210111
  Transmission Date: 20210419
  Serious: Yes (Other)
  Sender: FDA-Public Use
  Company Number: US-MYLANLABS-2021M1000845

PATIENT
  Sex: Female

DRUGS (1)
  1. SOTRADECOL [Suspect]
     Active Substance: SODIUM TETRADECYL SULFATE
     Indication: PAIN
     Dosage: UNK
     Route: 065

REACTIONS (1)
  - Anaphylactic reaction [Recovered/Resolved]
